FAERS Safety Report 9911542 (Version 1)
Quarter: 2014Q1

REPORT INFORMATION
  Report Type: Spontaneous
  Country: GR (occurrence: GR)
  Receive Date: 20140219
  Receipt Date: 20140219
  Transmission Date: 20141002
  Serious: Yes (Other)
  Sender: FDA-Public Use
  Company Number: PHHY2014GR019439

PATIENT
  Age: 75 Year
  Sex: Female

DRUGS (2)
  1. VOLTAREN [Suspect]
     Dosage: UNK UKN, UNK
  2. DEPON [Concomitant]
     Dosage: UNK UKN, UNK

REACTIONS (3)
  - Swelling face [Recovering/Resolving]
  - Eye swelling [Recovering/Resolving]
  - Blood pressure increased [Recovering/Resolving]
